FAERS Safety Report 12474508 (Version 4)
Quarter: 2016Q4

REPORT INFORMATION
  Report Type: Spontaneous
  Country: NL (occurrence: NL)
  Receive Date: 20160617
  Receipt Date: 20161018
  Transmission Date: 20170207
  Serious: Yes (Other)
  Sender: FDA-Public Use
  Company Number: NL-BRISTOL-MYERS SQUIBB COMPANY-BMS-2016-045871

PATIENT
  Sex: Male

DRUGS (2)
  1. ANTAGEL                            /00002901/ [Concomitant]
     Indication: PRODUCT USED FOR UNKNOWN INDICATION
     Route: 065
  2. ABILIFY [Suspect]
     Active Substance: ARIPIPRAZOLE
     Indication: PRODUCT USED FOR UNKNOWN INDICATION
     Dosage: 15 MG, QD
     Route: 065

REACTIONS (4)
  - Back pain [Recovered/Resolved]
  - Splenic injury [Unknown]
  - Renal impairment [Recovered/Resolved]
  - Liver injury [Unknown]

NARRATIVE: CASE EVENT DATE: 2016
